FAERS Safety Report 13716352 (Version 1)
Quarter: 2017Q3

REPORT INFORMATION
  Report Type: Spontaneous
  Country: ES (occurrence: ES)
  Receive Date: 20170705
  Receipt Date: 20170705
  Transmission Date: 20171127
  Serious: Yes (Hospitalization, Other)
  Sender: FDA-Public Use
  Company Number: ES-BRISTOL-MYERS SQUIBB COMPANY-BMS-2017-057949

PATIENT
  Age: 75 Year
  Sex: Male

DRUGS (1)
  1. NIVOLUMAB [Suspect]
     Active Substance: NIVOLUMAB
     Indication: LUNG ADENOCARCINOMA
     Dosage: PATIENT HAD 4 DOSES
     Route: 065

REACTIONS (3)
  - Cardiac tamponade [Unknown]
  - Pericardial effusion [Recovering/Resolving]
  - Pericardial excision [Unknown]

NARRATIVE: CASE EVENT DATE: 20170317
